FAERS Safety Report 4446413-3 (Version None)
Quarter: 2004Q3

REPORT INFORMATION
  Report Type: 
  Country: None (occurrence: None)
  Receive Date: 20040903
  Receipt Date: 20040823
  Transmission Date: 20050211
  Serious: Yes (Hospitalization)
  Sender: FDA-Public Use
  Company Number: 6009870

PATIENT
  Age: 92 Year
  Sex: Female

DRUGS (9)
  1. LEVOTHYROX (100 TABLETS) (LEVOTHYROXINE SODIUM) [Suspect]
     Indication: HYPOTHYROIDISM
     Dosage: 700,0000 MCG  (700 MCG, 1 IN 1 D) ORAL
     Route: 048
     Dates: start: 20040730, end: 20040730
  2. LEVOTHYROX 100 (TABLETS) (LEVOTHYROXINE SODIUM) [Suspect]
     Indication: HYPOTHYROIDISM
     Dosage: 100,0000 MCG (100 MCG, 1 IN 1 D) ORAL
     Route: 048
  3. FERROUS SULFATE TAB [Concomitant]
  4. NEXIUM [Concomitant]
  5. DI-ANTALVIC (PARACETAMOL), DEXTROPROPOXYPHENE HYDROCHLORIDE) [Concomitant]
  6. AMIODARONE HCL [Concomitant]
  7. FUROSEMIDE [Concomitant]
  8. FOLIC ACID [Concomitant]
  9. TRIVASTAL (PIRIBEDIL) [Concomitant]

REACTIONS (2)
  - ACCIDENTAL OVERDOSE [None]
  - MEDICATION ERROR [None]
